FAERS Safety Report 17095865 (Version 2)
Quarter: 2019Q4

REPORT INFORMATION
  Report Type: Spontaneous
  Country: US (occurrence: US)
  Receive Date: 20191201
  Receipt Date: 20191208
  Transmission Date: 20200122
  Serious: No
  Sender: FDA-Public Use
  Company Number: US-JNJFOC-20191138294

PATIENT
  Sex: Male
  Weight: 97.61 kg

DRUGS (1)
  1. TYLENOL [Suspect]
     Active Substance: ACETAMINOPHEN
     Indication: ARTHRALGIA
     Dosage: 2 PILLS AS NEEDED
     Route: 048
     Dates: start: 201911

REACTIONS (1)
  - Drug ineffective [Unknown]
